FAERS Safety Report 21075515 (Version 1)
Quarter: 2022Q3

REPORT INFORMATION
  Report Type: Report from Study
  Country: ZA (occurrence: ZA)
  Receive Date: 20220713
  Receipt Date: 20220713
  Transmission Date: 20221027
  Serious: Yes (Hospitalization)
  Sender: FDA-Public Use
  Company Number: ZA-AMGEN-ZAFSL2022115089

PATIENT
  Sex: Female

DRUGS (1)
  1. ADALIMUMAB [Suspect]
     Active Substance: ADALIMUMAB
     Indication: Product used for unknown indication
     Dosage: UNK
     Route: 058
     Dates: start: 20220427

REACTIONS (6)
  - Epistaxis [Unknown]
  - Dizziness [Unknown]
  - Hypoaesthesia [Unknown]
  - Paraesthesia [Unknown]
  - Lower respiratory tract infection [Unknown]
  - Hypertension [Unknown]

NARRATIVE: CASE EVENT DATE: 20220704
